FAERS Safety Report 8469276-8 (Version None)
Quarter: 2012Q2

REPORT INFORMATION
  Report Type: 
  Country: None (occurrence: None)
  Receive Date: 20120626
  Receipt Date: 20120619
  Transmission Date: 20120825
  Serious: Yes (Other)
  Sender: FDA-Public Use
  Company Number: CA-ELI_LILLY_AND_COMPANY-CA201206006564

PATIENT
  Age: 83 Year
  Sex: Female

DRUGS (8)
  1. LIPITOR [Concomitant]
  2. MICARDIS [Concomitant]
  3. FORTEO [Suspect]
     Indication: OSTEOPOROSIS
     Dosage: 20 UG, QD
     Route: 058
     Dates: start: 20110429
  4. VITALUX [Concomitant]
  5. INDAPAMIDE [Concomitant]
  6. JANUVIA [Concomitant]
  7. VITAMIN D [Concomitant]
  8. METOPROLOL TARTRATE [Concomitant]

REACTIONS (1)
  - BONE MARROW DISORDER [None]
